FAERS Safety Report 21079477 (Version 1)
Quarter: 2022Q3

REPORT INFORMATION
  Report Type: Report from Study
  Country: US (occurrence: US)
  Receive Date: 20220714
  Receipt Date: 20220714
  Transmission Date: 20221027
  Serious: Yes (Other)
  Sender: FDA-Public Use
  Company Number: US-BRISTOL-MYERS SQUIBB COMPANY-2022-070265

PATIENT
  Sex: Male

DRUGS (1)
  1. ELIQUIS [Suspect]
     Active Substance: APIXABAN
     Indication: Cerebrovascular accident prophylaxis
     Route: 065
     Dates: start: 202104

REACTIONS (4)
  - Wound haemorrhage [Unknown]
  - Atrial fibrillation [Not Recovered/Not Resolved]
  - Gingival bleeding [Recovered/Resolved]
  - Vessel puncture site bruise [Unknown]

NARRATIVE: CASE EVENT DATE: 20220302
